FAERS Safety Report 8922540 (Version 1)
Quarter: 2012Q4

REPORT INFORMATION
  Report Type: 
  Country: ES (occurrence: ES)
  Receive Date: 20121126
  Receipt Date: 20121126
  Transmission Date: 20130627
  Serious: Yes (Hospitalization)
  Sender: FDA-Public Use
  Company Number: ES-MERCK-1211ESP009217

PATIENT
  Age: 39 Year
  Sex: Female
  Weight: 69 kg

DRUGS (5)
  1. REBETOL [Suspect]
     Indication: HEPATITIS C
     Route: 048
     Dates: start: 20120117, end: 20120712
  2. PEGASYS [Interacting]
     Indication: HEPATITIS C
     Route: 058
     Dates: start: 20120117, end: 20120712
  3. PREZISTA [Concomitant]
     Indication: HIV INFECTION
     Route: 065
     Dates: start: 201102
  4. TRUVADA [Concomitant]
     Route: 065
     Dates: start: 201102
  5. RITONAVIR [Concomitant]
     Indication: HIV INFECTION
     Route: 065
     Dates: start: 201102

REACTIONS (1)
  - Psychotic disorder [Recovered/Resolved]
